FAERS Safety Report 7593588-3 (Version None)
Quarter: 2011Q3

REPORT INFORMATION
  Report Type: 
  Country: None (occurrence: None)
  Receive Date: 20110706
  Receipt Date: 20110627
  Transmission Date: 20111222
  Serious: Yes (Hospitalization)
  Sender: FDA-Public Use
  Company Number: BR-ASTRAZENECA-2011SE38861

PATIENT
  Age: 51 Year
  Sex: Female
  Weight: 73 kg

DRUGS (3)
  1. METOPROLOL SUCCINATE [Suspect]
     Route: 048
     Dates: start: 20090101
  2. METOPROLOL SUCCINATE [Suspect]
     Indication: HYPERTENSION
     Route: 048
     Dates: start: 20070101, end: 20090101
  3. METOPROLOL SUCCINATE [Suspect]
     Route: 048
     Dates: start: 20110401

REACTIONS (7)
  - BLOOD PRESSURE INADEQUATELY CONTROLLED [None]
  - BREAST CANCER [None]
  - WEIGHT INCREASED [None]
  - RADIOTHERAPY [None]
  - MASTECTOMY [None]
  - CHEMOTHERAPY [None]
  - DRUG INEFFECTIVE [None]
